FAERS Safety Report 25166222 (Version 4)
Quarter: 2025Q4

REPORT INFORMATION
  Report Type: Spontaneous
  Country: US (occurrence: US)
  Receive Date: 20250407
  Receipt Date: 20251103
  Transmission Date: 20260118
  Serious: No
  Sender: SUNOVION
  Company Number: US-SMPA-2025SPA002931AA

PATIENT
  Age: 76 Year
  Sex: Male

DRUGS (14)
  1. ORGOVYX [Suspect]
     Active Substance: RELUGOLIX
     Indication: Prostate cancer
     Dosage: 360 MG, SINGLE (ON DAY 1)
     Route: 048
     Dates: start: 20250308, end: 20250308
  2. ORGOVYX [Suspect]
     Active Substance: RELUGOLIX
     Dosage: 120 MG, QD
     Route: 048
     Dates: start: 20250309
  3. ASPIRIN [Concomitant]
     Active Substance: ASPIRIN
  4. CETIRIZINE HCL [Concomitant]
     Active Substance: CETIRIZINE HYDROCHLORIDE
  5. CIALIS [Concomitant]
     Active Substance: TADALAFIL
  6. IBUPROFEN [Concomitant]
     Active Substance: IBUPROFEN
  7. LISINOPRIL [Concomitant]
     Active Substance: LISINOPRIL
  8. NASACORT ALLERGY 24HR [Concomitant]
     Active Substance: TRIAMCINOLONE ACETONIDE
     Route: 045
  9. Rolaids extra strength softchews [Concomitant]
  10. TYLENOL [Concomitant]
     Active Substance: ACETAMINOPHEN
  11. VITAMIN D3 [Concomitant]
     Active Substance: CHOLECALCIFEROL
  12. ROSUVASTATIN [Concomitant]
     Active Substance: ROSUVASTATIN
  13. ELIQUIS [Concomitant]
     Active Substance: APIXABAN
     Dosage: UNK
  14. METOPROLOL TARTRATE [Concomitant]
     Active Substance: METOPROLOL TARTRATE
     Dosage: UNK

REACTIONS (5)
  - Asthenia [Unknown]
  - Lip swelling [Unknown]
  - Gingival swelling [Recovered/Resolved]
  - Therapy interrupted [Recovered/Resolved]
  - Inappropriate schedule of product administration [Recovered/Resolved]
